FAERS Safety Report 7139135-1 (Version None)
Quarter: 2010Q4

REPORT INFORMATION
  Report Type: 
  Country: None (occurrence: None)
  Receive Date: 20101206
  Receipt Date: 20101124
  Transmission Date: 20110411
  Serious: Yes (Other)
  Sender: FDA-Public Use
  Company Number: PHHY2010JP80216

PATIENT

DRUGS (1)
  1. ZOMETA [Suspect]
     Indication: METASTASES TO BONE
     Dosage: ONCE OR TWICE PER MONTH
     Route: 041

REACTIONS (3)
  - IMPAIRED HEALING [None]
  - OSTEONECROSIS OF JAW [None]
  - TOOTH EXTRACTION [None]
